FAERS Safety Report 20717831 (Version 1)
Quarter: 2022Q2

REPORT INFORMATION
  Report Type: Spontaneous
  Country: PT (occurrence: PT)
  Receive Date: 20220418
  Receipt Date: 20220418
  Transmission Date: 20220720
  Serious: Yes (Hospitalization, Other)
  Sender: FDA-Public Use
  Company Number: PT-MYLANLABS-2022M1024763

PATIENT
  Age: 33 Year
  Sex: Female

DRUGS (6)
  1. ONDANSETRON [Suspect]
     Active Substance: ONDANSETRON
     Indication: Gitelman^s syndrome
     Dosage: UNK
     Route: 065
  2. SPIRONOLACTONE [Suspect]
     Active Substance: SPIRONOLACTONE
     Indication: Gitelman^s syndrome
     Dosage: UNK (UP TO 300MG BID SPIRONOLACTONE)
     Route: 065
  3. EPLERENONE [Concomitant]
     Active Substance: EPLERENONE
     Indication: Gitelman^s syndrome
     Dosage: 200 MILLIGRAM, ONCE A DAY
     Route: 065
  4. MAGNESIUM ASPARTATE [Concomitant]
     Active Substance: MAGNESIUM ASPARTATE
     Indication: Gitelman^s syndrome
     Dosage: 500 MILLIGRAM, ONCE A DAY (250 MILLIGRAM, BID)
     Route: 065
  5. POTASSIUM CHLORIDE [Concomitant]
     Active Substance: POTASSIUM CHLORIDE
     Indication: Gitelman^s syndrome
     Dosage: UNK
     Route: 048
  6. POTASSIUM CHLORIDE [Concomitant]
     Active Substance: POTASSIUM CHLORIDE
     Dosage: UNK
     Route: 042

REACTIONS (4)
  - Hypokalaemia [Recovered/Resolved]
  - Gestational diabetes [Recovered/Resolved]
  - Maternal exposure during pregnancy [Recovered/Resolved]
  - Off label use [Unknown]

NARRATIVE: CASE EVENT DATE: 20180301
